FAERS Safety Report 14111371 (Version 2)
Quarter: 2017Q4

REPORT INFORMATION
  Report Type: Spontaneous
  Country: JP (occurrence: JP)
  Receive Date: 20171020
  Receipt Date: 20171024
  Transmission Date: 20180321
  Serious: Yes (Death)
  Sender: FDA-Public Use
  Company Number: JP-CURIUM PHARMACEUTICALS-201700244

PATIENT
  Age: 62 Year
  Sex: Male

DRUGS (1)
  1. OCTREOSCAN [Suspect]
     Active Substance: INDIUM IN-111 CHLORIDE\INDIUM IN-111 PENTETREOTIDE
     Indication: SOMATOSTATIN RECEPTOR SCAN
     Route: 042
     Dates: start: 20170607, end: 20170607

REACTIONS (1)
  - Condition aggravated [Fatal]
